FAERS Safety Report 9027156 (Version 15)
Quarter: 2016Q2

REPORT INFORMATION
  Report Type: Spontaneous
  Country: US (occurrence: US)
  Receive Date: 20130123
  Receipt Date: 20160531
  Transmission Date: 20160815
  Serious: Yes (Hospitalization, Other)
  Sender: FDA-Public Use
  Company Number: US-GLAXOSMITHKLINE-A0998240A

PATIENT
  Age: 74 Year
  Sex: Female

DRUGS (18)
  1. FLOLAN [Suspect]
     Active Substance: EPOPROSTENOL SODIUM
     Dosage: UNK
     Dates: start: 19970822
  2. WARFARIN [Concomitant]
     Active Substance: WARFARIN
  3. FLOLAN [Suspect]
     Active Substance: EPOPROSTENOL SODIUM
     Dosage: UNK
     Dates: start: 19970822
  4. FLOLAN [Suspect]
     Active Substance: EPOPROSTENOL SODIUM
     Dosage: 29 NG/KG/MIN, CONTINOUS
     Dates: start: 19991012
  5. FLOLAN [Suspect]
     Active Substance: EPOPROSTENOL SODIUM
     Dosage: UNK, CO
     Route: 042
  6. FLOLAN [Suspect]
     Active Substance: EPOPROSTENOL SODIUM
     Indication: PULMONARY ARTERIAL HYPERTENSION
     Dosage: CONCENTRATION IS 60,000 NG/ML, 1.5 MG VIAL, 28 NG/KG/MIN CONTINUOUSLY, VIAL STRENGTH 1.5 MG
     Route: 042
     Dates: start: 19970822
  7. FLOLAN [Suspect]
     Active Substance: EPOPROSTENOL SODIUM
     Dosage: UNK, CO
     Route: 042
  8. FLOLAN [Suspect]
     Active Substance: EPOPROSTENOL SODIUM
     Dosage: 28 DF, CO
     Route: 042
     Dates: start: 19991012
  9. FLOLAN [Suspect]
     Active Substance: EPOPROSTENOL SODIUM
     Dosage: UNK
     Dates: start: 19991012
  10. LETAIRIS [Concomitant]
     Active Substance: AMBRISENTAN
  11. FLOLAN [Suspect]
     Active Substance: EPOPROSTENOL SODIUM
     Dosage: UNK
     Dates: start: 19970822
  12. FLOLAN [Suspect]
     Active Substance: EPOPROSTENOL SODIUM
     Dosage: 28NG/KG/MIN, CONCENTRATION 60,000 NG/ML, PUMP RATE 75 ML/DAY, VIAL STRENGTH 1.5 MG, CO
  13. FLOLAN [Suspect]
     Active Substance: EPOPROSTENOL SODIUM
     Dosage: 28 DF, CO
     Route: 042
  14. FLOLAN [Suspect]
     Active Substance: EPOPROSTENOL SODIUM
     Dosage: UNK
     Dates: start: 19970822
  15. FLOLAN [Suspect]
     Active Substance: EPOPROSTENOL SODIUM
     Dosage: 28NG/KG/MIN, CONCENTRATION 60,000 NG/ML, PUMP RATE 75 ML/DAY, VIAL STRENGTH 1.5 MG, CO
  16. FLOLAN [Suspect]
     Active Substance: EPOPROSTENOL SODIUM
     Dosage: UNK, CO
     Route: 042
  17. REVATIO [Concomitant]
     Active Substance: SILDENAFIL CITRATE
  18. COUMADIN [Concomitant]
     Active Substance: WARFARIN SODIUM

REACTIONS (24)
  - Upper respiratory tract infection [Recovered/Resolved]
  - Small intestinal bacterial overgrowth [Unknown]
  - Fall [Unknown]
  - Urticaria [Recovered/Resolved]
  - Neurological symptom [Not Recovered/Not Resolved]
  - Complication associated with device [Recovered/Resolved]
  - Central venous catheter removal [Recovered/Resolved]
  - Craniotomy [Unknown]
  - Sinusitis [Unknown]
  - Central venous catheterisation [Recovered/Resolved]
  - Bronchitis [Unknown]
  - Device leakage [Recovered/Resolved]
  - Back injury [Unknown]
  - Muscle spasms [Unknown]
  - Device related infection [Not Recovered/Not Resolved]
  - Catheter site infection [Unknown]
  - Rehabilitation therapy [Not Recovered/Not Resolved]
  - Catheter site haemorrhage [Unknown]
  - Intracranial pressure increased [Unknown]
  - Brain injury [Unknown]
  - Device occlusion [Recovered/Resolved]
  - Head injury [Unknown]
  - Diarrhoea [Recovered/Resolved]
  - International normalised ratio abnormal [Not Recovered/Not Resolved]

NARRATIVE: CASE EVENT DATE: 201602
